FAERS Safety Report 5479945-X (Version None)
Quarter: 2007Q4

REPORT INFORMATION
  Report Type: 
  Country: None (occurrence: None)
  Receive Date: 20071008
  Receipt Date: 20070926
  Transmission Date: 20080405
  Serious: Yes (Hospitalization, Disabling)
  Sender: FDA-Public Use
  Company Number: US-GENENTECH-236019

PATIENT
  Sex: Male
  Weight: 78 kg

DRUGS (9)
  1. BEVACIZUMAB [Suspect]
     Indication: NON-SMALL CELL LUNG CANCER
     Dosage: 1395 MG, Q3W
     Route: 042
     Dates: start: 20061121, end: 20070105
  2. CARBOPLATIN [Suspect]
     Indication: NON-SMALL CELL LUNG CANCER
     Dosage: 650 MG, Q3W
     Route: 042
     Dates: start: 20061121, end: 20070105
  3. PACLITAXEL [Suspect]
     Indication: NON-SMALL CELL LUNG CANCER
     Dosage: 435 MG, Q3W
     Route: 042
     Dates: start: 20061121, end: 20070105
  4. DEXAMETHASONE 0.5MG TAB [Concomitant]
     Indication: DRUG USE FOR UNKNOWN INDICATION
  5. REGLAN [Concomitant]
     Indication: DRUG USE FOR UNKNOWN INDICATION
  6. EMEND [Concomitant]
     Indication: DRUG USE FOR UNKNOWN INDICATION
  7. KYTRIL [Concomitant]
     Indication: DRUG USE FOR UNKNOWN INDICATION
  8. PHENERGAN HCL [Concomitant]
     Indication: DRUG USE FOR UNKNOWN INDICATION
  9. PRILOSEC [Concomitant]
     Indication: DRUG USE FOR UNKNOWN INDICATION

REACTIONS (2)
  - ANAEMIA [None]
  - EROSIVE OESOPHAGITIS [None]
